FAERS Safety Report 12639108 (Version 2)
Quarter: 2016Q4

REPORT INFORMATION
  Report Type: Spontaneous
  Country: US (occurrence: US)
  Receive Date: 20160810
  Receipt Date: 20161130
  Transmission Date: 20170207
  Serious: Yes (Hospitalization, Other)
  Sender: FDA-Public Use
  Company Number: US-ROCHE-1811057

PATIENT
  Age: 55 Year
  Sex: Male

DRUGS (1)
  1. ESBRIET [Suspect]
     Active Substance: PIRFENIDONE
     Indication: IDIOPATHIC PULMONARY FIBROSIS
     Dosage: 3 PILLS THREE TIMES DAILY (TOTAL: 9 PILLS PER DAY)
     Route: 048
     Dates: start: 201601

REACTIONS (5)
  - Pneumonia [Unknown]
  - Dyspnoea exertional [Unknown]
  - Nausea [Recovered/Resolved]
  - Hypoxia [Recovered/Resolved]
  - Pulmonary function test abnormal [Unknown]

NARRATIVE: CASE EVENT DATE: 201601
